FAERS Safety Report 6954697-2 (Version None)
Quarter: 2010Q3

REPORT INFORMATION
  Report Type: 
  Country: None (occurrence: None)
  Receive Date: 20100829
  Receipt Date: 20100820
  Transmission Date: 20110219
  Serious: No
  Sender: FDA-Public Use
  Company Number: US-US-EMD SERONO, INC.-232905J10USA

PATIENT
  Sex: Female

DRUGS (6)
  1. REBIF [Suspect]
     Indication: MULTIPLE SCLEROSIS
     Route: 058
     Dates: start: 20100302, end: 20100101
  2. REBIF [Suspect]
     Route: 058
     Dates: start: 20100101, end: 20100101
  3. REBIF [Suspect]
     Dates: start: 20100101, end: 20100101
  4. REBIF [Suspect]
     Dates: start: 20100101
  5. BIRTH CONTROL [Concomitant]
  6. OTHER UNSPECIFIED MEDICATIONS [Concomitant]

REACTIONS (12)
  - ANAL FISSURE [None]
  - FEELING ABNORMAL [None]
  - HEADACHE [None]
  - IMPAIRED HEALING [None]
  - INFLUENZA LIKE ILLNESS [None]
  - INJECTION SITE ERYTHEMA [None]
  - INJECTION SITE PAIN [None]
  - LIVER FUNCTION TEST ABNORMAL [None]
  - MYALGIA [None]
  - PARAESTHESIA [None]
  - PERIRECTAL ABSCESS [None]
  - PYREXIA [None]
